FAERS Safety Report 6904321-X (Version None)
Quarter: 2010Q3

REPORT INFORMATION
  Report Type: 
  Country: None (occurrence: None)
  Receive Date: 20100804
  Receipt Date: 20090421
  Transmission Date: 20110219
  Serious: No
  Sender: FDA-Public Use
  Company Number: US-PFIZER INC-2009203043

PATIENT
  Sex: Female

DRUGS (3)
  1. LYRICA [Suspect]
     Indication: FIBROMYALGIA
     Dosage: 25 MG, 3X/DAY
     Dates: start: 20090101
  2. NEXIUM [Concomitant]
     Dosage: UNK
  3. DIAZEPAM [Concomitant]
     Dosage: UNK

REACTIONS (2)
  - FATIGUE [None]
  - WEIGHT INCREASED [None]
